FAERS Safety Report 13666274 (Version 1)
Quarter: 2017Q2

REPORT INFORMATION
  Report Type: Spontaneous
  Country: US (occurrence: US)
  Receive Date: 20170619
  Receipt Date: 20170619
  Transmission Date: 20170830
  Serious: No
  Sender: FDA-Public Use
  Company Number: US-ROCHE-1297445

PATIENT
  Sex: Female

DRUGS (7)
  1. ZOFRAN [Concomitant]
     Active Substance: ONDANSETRON HYDROCHLORIDE
  2. ELOXATIN [Concomitant]
     Active Substance: OXALIPLATIN
  3. XELODA [Suspect]
     Active Substance: CAPECITABINE
     Indication: COLON CANCER
     Dosage: 14 DAYS, 7 DAYS OFF
     Route: 065
     Dates: start: 20130731
  4. AVASTIN [Suspect]
     Active Substance: BEVACIZUMAB
     Indication: PRODUCT USED FOR UNKNOWN INDICATION
     Route: 065
  5. ERBITUX [Concomitant]
     Active Substance: CETUXIMAB
  6. IRINOTECAN [Concomitant]
     Active Substance: IRINOTECAN
  7. XELODA [Suspect]
     Active Substance: CAPECITABINE
     Indication: METASTASES TO PLEURA

REACTIONS (4)
  - Erythema [Recovering/Resolving]
  - Skin fissures [Unknown]
  - Dry skin [Unknown]
  - Diarrhoea [Unknown]
